FAERS Safety Report 11236921 (Version 2)
Quarter: 2016Q1

REPORT INFORMATION
  Report Type: Spontaneous
  Country: US (occurrence: US)
  Receive Date: 20150703
  Receipt Date: 20160128
  Transmission Date: 20160525
  Serious: Yes (Hospitalization, Other)
  Sender: FDA-Public Use
  Company Number: US-DSJP-DSU-2015-120139

PATIENT

DRUGS (3)
  1. BENICAR [Suspect]
     Active Substance: OLMESARTAN MEDOXOMIL
     Dosage: 40 MG, QD
     Route: 048
     Dates: start: 20061214, end: 2008
  2. BENICAR [Suspect]
     Active Substance: OLMESARTAN MEDOXOMIL
     Indication: HYPERTENSION
     Dosage: 20 MG, QD
     Route: 048
     Dates: start: 2006, end: 2008
  3. BENICAR HCT [Suspect]
     Active Substance: HYDROCHLOROTHIAZIDE\OLMESARTAN MEDOXOMIL
     Indication: HYPERTENSION
     Dosage: 40/12.5 MG QD
     Route: 048
     Dates: start: 20081020, end: 20140311

REACTIONS (9)
  - Gastritis [Unknown]
  - Erosive oesophagitis [Unknown]
  - Diverticulitis [Unknown]
  - Malabsorption [Unknown]
  - Gastrooesophageal reflux disease [Unknown]
  - Vitamin D deficiency [Unknown]
  - Lower gastrointestinal haemorrhage [Unknown]
  - Renal failure [Unknown]
  - Dizziness [Unknown]

NARRATIVE: CASE EVENT DATE: 20100817
